FAERS Safety Report 7867778-6 (Version None)
Quarter: 2011Q4

REPORT INFORMATION
  Report Type: 
  Country: None (occurrence: None)
  Receive Date: 20111028
  Receipt Date: 20111019
  Transmission Date: 20120403
  Serious: Yes (Other)
  Sender: FDA-Public Use
  Company Number: US-ASTRAZENECA-2011SE30028

PATIENT
  Age: 61 Year
  Sex: Female

DRUGS (2)
  1. SYMBICORT [Suspect]
     Indication: ASTHMA
     Dosage: UNKNOWN
     Route: 055
  2. SYMBICORT [Suspect]
     Indication: DYSPNOEA
     Dosage: UNKNOWN
     Route: 055

REACTIONS (3)
  - BRONCHITIS [None]
  - BRAIN INJURY [None]
  - AMNESIA [None]
